FAERS Safety Report 20346261 (Version 4)
Quarter: 2022Q4

REPORT INFORMATION
  Report Type: Spontaneous
  Country: DE (occurrence: DE)
  Receive Date: 20220118
  Receipt Date: 20221209
  Transmission Date: 20230112
  Serious: Yes (Other)
  Sender: FDA-Public Use
  Company Number: DE-NOVARTISPH-NVSC2022DE009658

PATIENT
  Age: 58 Year
  Sex: Female
  Weight: 67.2 kg

DRUGS (6)
  1. CARBOPLATIN [Suspect]
     Active Substance: CARBOPLATIN
     Indication: Non-small cell lung cancer
     Dosage: 584 MG, Q3W
     Route: 042
     Dates: start: 20210325, end: 20210415
  2. NIVOLUMAB [Suspect]
     Active Substance: NIVOLUMAB
     Indication: Non-small cell lung cancer
     Dosage: 360 MG, Q3W
     Route: 042
     Dates: start: 20210415
  3. NIVOLUMAB [Suspect]
     Active Substance: NIVOLUMAB
     Dosage: 360 MG, Q3W
     Route: 042
     Dates: start: 20210325
  4. NIVOLUMAB [Suspect]
     Active Substance: NIVOLUMAB
     Dosage: 360 MG, Q3W
     Route: 042
     Dates: start: 20210325
  5. IPILIMUMAB [Suspect]
     Active Substance: IPILIMUMAB
     Indication: Non-small cell lung cancer
     Dosage: 66 MG, Q6WK
     Route: 042
     Dates: start: 20210325
  6. IPILIMUMAB [Suspect]
     Active Substance: IPILIMUMAB
     Dosage: 66 MG, Q6WK
     Route: 042
     Dates: start: 20210325

REACTIONS (1)
  - Autoimmune hypothyroidism [Recovered/Resolved]

NARRATIVE: CASE EVENT DATE: 20210722
